FAERS Safety Report 8515921-8 (Version None)
Quarter: 2012Q3

REPORT INFORMATION
  Report Type: 
  Country: None (occurrence: None)
  Receive Date: 20120717
  Receipt Date: 20120712
  Transmission Date: 20120928
  Serious: Yes (Hospitalization, Other)
  Sender: FDA-Public Use
  Company Number: JP-PFIZER INC-2012155247

PATIENT
  Age: 83 Year
  Sex: Male

DRUGS (7)
  1. KAMA [Concomitant]
     Dosage: UNK
  2. PURSENNID [Concomitant]
     Dosage: UNK
  3. LYRICA [Suspect]
     Dosage: 300 MG DAILY, TAKEN TWICE DAILY
     Route: 048
  4. ZOLPIDEM [Concomitant]
     Dosage: UNK
  5. DAIOKANZOTO [Concomitant]
     Dosage: UNK
  6. MUCOSTA [Concomitant]
     Dosage: UNK
  7. MORPHINE [Concomitant]
     Dosage: UNK

REACTIONS (2)
  - RHABDOMYOLYSIS [None]
  - C-REACTIVE PROTEIN INCREASED [None]
